FAERS Safety Report 20625627 (Version 2)
Quarter: 2023Q1

REPORT INFORMATION
  Report Type: Spontaneous
  Country: US (occurrence: None)
  Receive Date: 20220323
  Receipt Date: 20230321
  Transmission Date: 20230418
  Serious: No
  Sender: FDA-Public Use
  Company Number: US-ROCHE-2972088

PATIENT
  Sex: Female

DRUGS (7)
  1. ERIVEDGE [Suspect]
     Active Substance: VISMODEGIB
     Indication: Soft tissue disorder
     Route: 048
     Dates: start: 20211201
  2. AMLODIPINE BESYLATE [Concomitant]
     Active Substance: AMLODIPINE BESYLATE
  3. HYDROCHLOROTHIAZIDE [Concomitant]
     Active Substance: HYDROCHLOROTHIAZIDE
  4. LASIX [Concomitant]
     Active Substance: FUROSEMIDE
  5. MECLIZINE HYDROCHLORIDE [Concomitant]
     Active Substance: MECLIZINE HYDROCHLORIDE
  6. VITAMIN C [Concomitant]
     Active Substance: ASCORBIC ACID
  7. VITAMIN D3 [Concomitant]
     Active Substance: CHOLECALCIFEROL

REACTIONS (6)
  - Alopecia [Not Recovered/Not Resolved]
  - Weight decreased [Unknown]
  - Nasal congestion [Not Recovered/Not Resolved]
  - Decreased appetite [Not Recovered/Not Resolved]
  - Dry skin [Not Recovered/Not Resolved]
  - Taste disorder [Not Recovered/Not Resolved]
